FAERS Safety Report 6215386-5 (Version None)
Quarter: 2009Q2

REPORT INFORMATION
  Report Type: 
  Country: None (occurrence: None)
  Receive Date: 20090603
  Receipt Date: 20090519
  Transmission Date: 20091009
  Serious: Yes (Other)
  Sender: FDA-Public Use
  Company Number: 2009S1009021

PATIENT
  Age: 32 Year
  Sex: Male

DRUGS (2)
  1. AMNESTEEM [Suspect]
     Indication: ACNE
     Dosage: 40 MG; TWICE A DAY; ORAL, 40 MG; DAILY; ORAL
     Route: 048
     Dates: start: 20090101, end: 20090401
  2. AMNESTEEM [Suspect]
     Indication: ACNE
     Dosage: 40 MG; TWICE A DAY; ORAL, 40 MG; DAILY; ORAL
     Route: 048
     Dates: start: 20090401, end: 20090518

REACTIONS (1)
  - BASAL CELL CARCINOMA [None]
